FAERS Safety Report 7577194-2 (Version None)
Quarter: 2011Q2

REPORT INFORMATION
  Report Type: 
  Country: None (occurrence: None)
  Receive Date: 20110628
  Receipt Date: 20110615
  Transmission Date: 20111010
  Serious: Yes (Hospitalization)
  Sender: FDA-Public Use
  Company Number: FR-NOVOPROD-330139

PATIENT
  Age: 70 Year
  Sex: Male

DRUGS (2)
  1. ORAL ANTIDIABETICS [Concomitant]
  2. VICTOZA [Suspect]
     Indication: TYPE 2 DIABETES MELLITUS
     Route: 065

REACTIONS (2)
  - PERIPHERAL PARALYSIS [None]
  - VIITH NERVE PARALYSIS [None]
